FAERS Safety Report 15899093 (Version 1)
Quarter: 2019Q1

REPORT INFORMATION
  Report Type: Spontaneous
  Country: FR (occurrence: FR)
  Receive Date: 20190201
  Receipt Date: 20190201
  Transmission Date: 20190417
  Serious: Yes (Hospitalization)
  Sender: FDA-Public Use
  Company Number: FR-TEVA-2019-FR-1005874

PATIENT
  Age: 35 Year
  Sex: Female
  Weight: 95 kg

DRUGS (3)
  1. EFFERALGAN [Concomitant]
     Active Substance: ACETAMINOPHEN
  2. AMOXICILLINE [Concomitant]
     Active Substance: AMOXICILLIN
  3. IBUPROFENE [Suspect]
     Active Substance: IBUPROFEN
     Indication: LARYNGEAL PAIN
     Route: 048
     Dates: start: 20181229, end: 20181229

REACTIONS (1)
  - Pharyngeal abscess [Recovered/Resolved]

NARRATIVE: CASE EVENT DATE: 20181230
